FAERS Safety Report 10177864 (Version 1)
Quarter: 2014Q2

REPORT INFORMATION
  Report Type: Report from Study
  Country: US (occurrence: US)
  Receive Date: 20140516
  Receipt Date: 20140516
  Transmission Date: 20141212
  Serious: Yes (Other)
  Sender: FDA-Public Use
  Company Number: US-B.I. PHARMACEUTICALS,INC./RIDGEFIELD-2014-BI-20882BI

PATIENT
  Sex: Female

DRUGS (5)
  1. GILOTRIF [Suspect]
     Indication: LUNG NEOPLASM MALIGNANT
     Dosage: 40 MG
     Route: 048
     Dates: start: 20140423
  2. CENTRUM MULTIVITAMIN [Concomitant]
     Route: 065
  3. LOSARTAN-HCTZ [Concomitant]
     Dosage: DOSE PER APPLICATION: 100-12.5MG
     Route: 065
  4. EXCEDERIN MIGRAINE [Concomitant]
     Route: 065
  5. OMEPRAZOLE [Concomitant]
     Dosage: DOSE PER APPLICATION: 20MG
     Route: 065

REACTIONS (4)
  - Nausea [Not Recovered/Not Resolved]
  - Vomiting [Not Recovered/Not Resolved]
  - Diarrhoea [Not Recovered/Not Resolved]
  - Rash [Unknown]
